FAERS Safety Report 7931854-X (Version None)
Quarter: 2011Q4

REPORT INFORMATION
  Report Type: 
  Country: None (occurrence: None)
  Receive Date: 20111121
  Receipt Date: 20111116
  Transmission Date: 20120403
  Serious: Yes (Death, Life-Threatening, Hospitalization)
  Sender: FDA-Public Use
  Company Number: CA-ASTRAZENECA-2011SE67349

PATIENT
  Age: 66 Year
  Sex: Male
  Weight: 85 kg

DRUGS (9)
  1. METFORMIN HCL [Concomitant]
     Indication: DIABETES MELLITUS
     Dosage: UNKNOWN DOSE THREE TIMES A DAY
     Route: 048
  2. BRILINTA [Suspect]
     Indication: MYOCARDIAL INFARCTION
     Route: 048
     Dates: start: 20111023, end: 20111024
  3. BRILINTA [Suspect]
     Route: 048
     Dates: start: 20111027
  4. AMARYL [Concomitant]
     Indication: DIABETES MELLITUS
     Route: 048
  5. ASPIRIN [Suspect]
     Route: 048
  6. CARDIZEN [Concomitant]
     Indication: CORONARY ARTERY DISEASE
     Route: 048
     Dates: start: 20111001
  7. SIMVASTATIN [Concomitant]
     Indication: PERIPHERAL ARTERIAL OCCLUSIVE DISEASE
     Route: 048
  8. CAPTOPRIL [Concomitant]
     Indication: VENTRICULAR REMODELING
     Route: 048
  9. CAPTOPRIL [Concomitant]
     Indication: PROPHYLAXIS
     Route: 048

REACTIONS (3)
  - PULMONARY HAEMORRHAGE [None]
  - GASTROINTESTINAL HAEMORRHAGE [None]
  - CHRONIC OBSTRUCTIVE PULMONARY DISEASE [None]
